FAERS Safety Report 4438981-2 (Version None)
Quarter: 2004Q3

REPORT INFORMATION
  Report Type: 
  Country: None (occurrence: None)
  Receive Date: 20040830
  Receipt Date: 20040816
  Transmission Date: 20050211
  Serious: Yes (Hospitalization)
  Sender: FDA-Public Use
  Company Number: 2004011018

PATIENT
  Age: 48 Year
  Sex: Female

DRUGS (2)
  1. LIPITOR [Suspect]
     Indication: DYSLIPIDAEMIA
     Dosage: 10 (10 MG, 1 IN 1 D), ORAL
     Route: 048
     Dates: start: 20010501
  2. AMLODIPINE [Concomitant]

REACTIONS (2)
  - MYOCARDIAL INFARCTION [None]
  - VASCULAR OCCLUSION [None]
